FAERS Safety Report 22119303 (Version 2)
Quarter: 2023Q1

REPORT INFORMATION
  Report Type: Spontaneous
  Country: IT (occurrence: IT)
  Receive Date: 20230321
  Receipt Date: 20230324
  Transmission Date: 20230417
  Serious: Yes (Other)
  Sender: FDA-Public Use
  Company Number: IT-CELLTRION INC.-2023IT005495

PATIENT

DRUGS (3)
  1. RITUXIMAB [Suspect]
     Active Substance: RITUXIMAB
     Indication: Myasthenia gravis
     Dosage: 375 MG/M2, AFTER 6 MONTHS
     Route: 042
     Dates: start: 202010
  2. RITUXIMAB [Suspect]
     Active Substance: RITUXIMAB
     Dosage: 375 MG/M2/WEEK X4 REGIMEN
     Route: 042
  3. TOZINAMERAN [Concomitant]
     Active Substance: TOZINAMERAN
     Indication: COVID-19 prophylaxis
     Dosage: RECEIVED 2 DOSES OF MRNA VACCINE FOR SARS-COV-2

REACTIONS (2)
  - COVID-19 [Unknown]
  - Off label use [Unknown]
